FAERS Safety Report 5208839-X (Version None)
Quarter: 2007Q1

REPORT INFORMATION
  Report Type: 
  Country: None (occurrence: None)
  Receive Date: 20070116
  Receipt Date: 20070111
  Transmission Date: 20070707
  Serious: Yes (Hospitalization)
  Sender: FDA-Public Use
  Company Number: 2007UW00591

PATIENT
  Age: 85 Year
  Sex: Female
  Weight: 63.5 kg

DRUGS (10)
  1. ARIMIDEX [Suspect]
     Indication: BREAST CANCER STAGE II
     Route: 048
  2. SYNTHROID [Concomitant]
  3. LEXAPRO [Concomitant]
  4. ASPIRIN [Concomitant]
  5. TYLENOL [Concomitant]
  6. CENTRUM SILVER [Concomitant]
  7. CALTRATE [Concomitant]
  8. VITAMIN E [Concomitant]
  9. FLAX SEED OIL [Concomitant]
  10. PREMARIN [Concomitant]

REACTIONS (6)
  - ARTHRALGIA [None]
  - HEAD INJURY [None]
  - HOT FLUSH [None]
  - PHARYNGOLARYNGEAL PAIN [None]
  - THROMBOSIS [None]
  - VULVOVAGINAL DRYNESS [None]
